FAERS Safety Report 24985403 (Version 2)
Quarter: 2025Q1

REPORT INFORMATION
  Report Type: Spontaneous
  Country: US (occurrence: US)
  Receive Date: 20250219
  Receipt Date: 20250303
  Transmission Date: 20250409
  Serious: Yes (Other)
  Sender: COSETTE PHARMACEUTICALS INC
  Company Number: US-COSETTE-CP2025US000149

PATIENT
  Age: 52 Year
  Sex: Female

DRUGS (5)
  1. AMBIEN [Suspect]
     Active Substance: ZOLPIDEM TARTRATE
     Indication: Product used for unknown indication
     Route: 065
  2. AMBIEN [Suspect]
     Active Substance: ZOLPIDEM TARTRATE
     Route: 065
  3. AMBIEN CR [Suspect]
     Active Substance: ZOLPIDEM TARTRATE
     Indication: Product used for unknown indication
     Route: 065
  4. MELATONIN [Concomitant]
     Active Substance: MELATONIN
     Indication: Product used for unknown indication
     Route: 065
  5. VITAMINS NOS [Concomitant]
     Active Substance: VITAMINS
     Indication: Product used for unknown indication
     Route: 065

REACTIONS (10)
  - Drug dependence [Unknown]
  - Somnolence [Unknown]
  - Fatigue [Unknown]
  - Drug interaction [Unknown]
  - Somnambulism [Unknown]
  - Somnambulism [Unknown]
  - Sleep-related eating disorder [Unknown]
  - Abnormal sleep-related event [Unknown]
  - Sleep sex [Unknown]
  - Drug ineffective [Unknown]
